FAERS Safety Report 16611068 (Version 1)
Quarter: 2019Q3

REPORT INFORMATION
  Report Type: Spontaneous
  Country: US (occurrence: US)
  Receive Date: 20190722
  Receipt Date: 20190722
  Transmission Date: 20191004
  Serious: Yes (Other)
  Sender: FDA-Public Use
  Company Number: US-SA-2018SA058626

PATIENT
  Age: 51 Year
  Sex: Female
  Weight: 61 kg

DRUGS (7)
  1. ASPIRIN (E.C.) [Concomitant]
     Active Substance: ASPIRIN
  2. ADRIAMYCIN [Concomitant]
     Active Substance: DOXORUBICIN HYDROCHLORIDE
     Dosage: UNK
     Route: 065
  3. DIOVAN [Concomitant]
     Active Substance: VALSARTAN
  4. TAXOL [Concomitant]
     Active Substance: PACLITAXEL
  5. NEOSAR [Concomitant]
     Active Substance: CYCLOPHOSPHAMIDE
     Route: 065
  6. TAXOTERE [Suspect]
     Active Substance: DOCETAXEL
     Indication: BREAST CANCER FEMALE
     Dosage: 80 MG,UNK (1 CYCLE)
     Route: 042
     Dates: start: 20071025, end: 20071025
  7. VECTIBIX [Concomitant]
     Active Substance: PANITUMUMAB
     Route: 065

REACTIONS (2)
  - Psychological trauma [Unknown]
  - Alopecia [Recovering/Resolving]

NARRATIVE: CASE EVENT DATE: 200804
